FAERS Safety Report 5878427-0 (Version None)
Quarter: 2008Q3

REPORT INFORMATION
  Report Type: 
  Country: None (occurrence: None)
  Receive Date: 20080911
  Receipt Date: 20080904
  Transmission Date: 20090109
  Serious: Yes (Death, Hospitalization)
  Sender: FDA-Public Use
  Company Number: JP-AMGEN-US294726

PATIENT
  Sex: Male
  Weight: 68 kg

DRUGS (8)
  1. ENBREL [Suspect]
     Indication: RHEUMATOID ARTHRITIS
     Route: 058
     Dates: start: 20051205, end: 20060215
  2. BUFFERIN [Concomitant]
     Route: 048
     Dates: end: 20060314
  3. PLETAL [Concomitant]
     Route: 048
     Dates: end: 20060314
  4. LANSOPRAZOLE [Concomitant]
     Route: 048
     Dates: end: 20060314
  5. MICARDIS [Concomitant]
     Route: 048
     Dates: end: 20060314
  6. BUCILLAMINE [Concomitant]
     Indication: RHEUMATOID ARTHRITIS
     Dosage: UNSPECIFIED
     Route: 065
     Dates: start: 20060215
  7. CONIEL [Concomitant]
     Route: 048
     Dates: end: 20060314
  8. UNSPECIFIED STEROIDS [Concomitant]
     Route: 065

REACTIONS (3)
  - CARDIOPULMONARY FAILURE [None]
  - HAEMOPTYSIS [None]
  - LUNG SQUAMOUS CELL CARCINOMA STAGE UNSPECIFIED [None]
